FAERS Safety Report 7647598-8 (Version None)
Quarter: 2011Q3

REPORT INFORMATION
  Report Type: 
  Country: None (occurrence: None)
  Receive Date: 20110726
  Receipt Date: 20110711
  Transmission Date: 20111222
  Serious: Yes (Other)
  Sender: FDA-Public Use
  Company Number: JP-2011-11129

PATIENT
  Sex: Male

DRUGS (2)
  1. ODYNE (FLUTAMIDE) TABLET [Concomitant]
  2. PLETAL [Suspect]
     Dosage: ORAL
     Route: 048
     Dates: end: 20110501

REACTIONS (2)
  - PULMONARY HAEMORRHAGE [None]
  - HAEMORRHAGE SUBCUTANEOUS [None]
